FAERS Safety Report 19784975 (Version 1)
Quarter: 2021Q3

REPORT INFORMATION
  Report Type: Spontaneous
  Country: US (occurrence: US)
  Receive Date: 20210903
  Receipt Date: 20210903
  Transmission Date: 20211014
  Serious: Yes (Other)
  Sender: FDA-Public Use
  Company Number: US-GLAXOSMITHKLINE-US2021GSK186467

PATIENT
  Sex: Male

DRUGS (18)
  1. RANITIDINE. [Suspect]
     Active Substance: RANITIDINE
     Indication: GASTROOESOPHAGEAL REFLUX DISEASE
  2. RANITIDINE CAPSULE [Suspect]
     Active Substance: RANITIDINE
     Indication: ADENOMATOUS POLYPOSIS COLI
  3. RANITIDINE. [Suspect]
     Active Substance: RANITIDINE
     Indication: ADENOMATOUS POLYPOSIS COLI
  4. RANITIDINE. [Suspect]
     Active Substance: RANITIDINE
     Indication: GASTRITIS
     Dosage: 150 MG, QD
     Route: 065
     Dates: start: 198501, end: 201201
  5. RANITIDINE. [Suspect]
     Active Substance: RANITIDINE
     Indication: ADENOMATOUS POLYPOSIS COLI
  6. ZANTAC [Suspect]
     Active Substance: RANITIDINE HYDROCHLORIDE
     Indication: GASTROOESOPHAGEAL REFLUX DISEASE
  7. ZANTAC [Suspect]
     Active Substance: RANITIDINE HYDROCHLORIDE
     Indication: GASTROOESOPHAGEAL REFLUX DISEASE
  8. RANITIDINE. [Suspect]
     Active Substance: RANITIDINE
     Indication: ADENOMATOUS POLYPOSIS COLI
  9. RANITIDINE. [Suspect]
     Active Substance: RANITIDINE
     Indication: GASTRITIS
     Dosage: 150 MG, QD
     Route: 065
     Dates: start: 198501, end: 201201
  10. RANITIDINE. [Suspect]
     Active Substance: RANITIDINE
     Indication: GASTROOESOPHAGEAL REFLUX DISEASE
  11. RANITIDINE CAPSULE [Suspect]
     Active Substance: RANITIDINE
     Indication: GASTROOESOPHAGEAL REFLUX DISEASE
  12. ZANTAC [Suspect]
     Active Substance: RANITIDINE HYDROCHLORIDE
     Indication: GASTRITIS
     Dosage: 150 MG, QD
     Route: 065
     Dates: start: 198501, end: 201201
  13. ZANTAC [Suspect]
     Active Substance: RANITIDINE HYDROCHLORIDE
     Indication: ADENOMATOUS POLYPOSIS COLI
  14. ZANTAC [Suspect]
     Active Substance: RANITIDINE HYDROCHLORIDE
     Indication: GASTRITIS
     Dosage: 150 MG, QD
     Route: 065
     Dates: start: 198501, end: 201201
  15. RANITIDINE. [Suspect]
     Active Substance: RANITIDINE
     Indication: GASTRITIS
     Dosage: 150 MG, QD
     Route: 065
     Dates: start: 198501, end: 201201
  16. RANITIDINE CAPSULE [Suspect]
     Active Substance: RANITIDINE
     Indication: GASTRITIS
     Dosage: 150 MG, QD
     Route: 065
     Dates: start: 198501, end: 201201
  17. ZANTAC [Suspect]
     Active Substance: RANITIDINE HYDROCHLORIDE
     Indication: ADENOMATOUS POLYPOSIS COLI
  18. RANITIDINE. [Suspect]
     Active Substance: RANITIDINE
     Indication: GASTROOESOPHAGEAL REFLUX DISEASE

REACTIONS (1)
  - Renal cancer [Unknown]
